FAERS Safety Report 16006311 (Version 2)
Quarter: 2019Q2

REPORT INFORMATION
  Report Type: Spontaneous
  Country: JP (occurrence: JP)
  Receive Date: 20190225
  Receipt Date: 20190405
  Transmission Date: 20190711
  Serious: Yes (Life-Threatening, Hospitalization)
  Sender: FDA-Public Use
  Company Number: JP-FERRINGPH-2018FE07344

PATIENT

DRUGS (7)
  1. HCG [Suspect]
     Active Substance: GONADOTROPHIN, CHORIONIC
     Dosage: UNK
     Route: 030
     Dates: start: 20190209
  2. MENOPUR [Suspect]
     Active Substance: FOLLITROPIN\LUTEINIZING HORMONE
     Indication: OVULATION INDUCTION
     Dosage: 150 IU, 1 TIME DAILY
     Route: 030
     Dates: start: 20180215, end: 20180216
  3. MENOPUR [Suspect]
     Active Substance: FOLLITROPIN\LUTEINIZING HORMONE
     Dosage: 300 IU, 1 TIME DAILY
     Route: 030
     Dates: start: 20180209, end: 20180210
  4. CABASER [Concomitant]
     Active Substance: CABERGOLINE
     Indication: PRODUCT USED FOR UNKNOWN INDICATION
  5. LETROZOLE. [Suspect]
     Active Substance: LETROZOLE
     Indication: PRODUCT USED FOR UNKNOWN INDICATION
  6. MENOPUR [Suspect]
     Active Substance: FOLLITROPIN\LUTEINIZING HORMONE
     Dosage: 150 IU, 1 TIME DAILY
     Route: 030
     Dates: start: 20180211, end: 20180213
  7. HCG [Suspect]
     Active Substance: GONADOTROPHIN, CHORIONIC
     Indication: OVULATION INDUCTION
     Dosage: 5000 IU, 1 TIME DAILY
     Route: 030
     Dates: start: 20180217, end: 20180217

REACTIONS (2)
  - Prerenal failure [Recovered/Resolved]
  - Ovarian hyperstimulation syndrome [Recovered/Resolved]

NARRATIVE: CASE EVENT DATE: 20180221
